FAERS Safety Report 25510000 (Version 1)
Quarter: 2025Q3

REPORT INFORMATION
  Report Type: Spontaneous
  Country: US (occurrence: None)
  Receive Date: 20250702
  Receipt Date: 20250702
  Transmission Date: 20251021
  Serious: Yes (Disabling)
  Sender: FDA-CTU
  Company Number: None

PATIENT
  Age: 25 Year
  Sex: Female
  Weight: 72 kg

DRUGS (10)
  1. TIRZEPATIDE [Suspect]
     Active Substance: TIRZEPATIDE
     Indication: Polycystic ovarian syndrome
     Dates: start: 20250214
  2. SEMAGLUTIDE [Suspect]
     Active Substance: SEMAGLUTIDE
  3. LAMICTAL [Concomitant]
     Active Substance: LAMOTRIGINE
  4. LACOSAMIDE [Concomitant]
     Active Substance: LACOSAMIDE
  5. birth control combination pill [Concomitant]
  6. PROPRANOLOL [Concomitant]
     Active Substance: PROPRANOLOL HYDROCHLORIDE
  7. ADDERALL [Concomitant]
     Active Substance: AMPHETAMINE ASPARTATE\AMPHETAMINE SULFATE\DEXTROAMPHETAMINE SACCHARATE\DEXTROAMPHETAMINE SULFATE
  8. IODINE [Concomitant]
     Active Substance: IODINE
  9. VITAMINS [Concomitant]
     Active Substance: VITAMINS
  10. MAGNESIUM OXIDE [Concomitant]
     Active Substance: MAGNESIUM OXIDE

REACTIONS (7)
  - General physical health deterioration [None]
  - Weight increased [None]
  - Product prescribing error [None]
  - Illness [None]
  - Hormone level abnormal [None]
  - Drug ineffective [None]
  - Victim of abuse [None]

NARRATIVE: CASE EVENT DATE: 20250214
